FAERS Safety Report 17839372 (Version 1)
Quarter: 2020Q2

REPORT INFORMATION
  Report Type: Spontaneous
  Country: SG (occurrence: SG)
  Receive Date: 20200529
  Receipt Date: 20200529
  Transmission Date: 20200714
  Serious: Yes (Other)
  Sender: FDA-Public Use
  Company Number: NVSC2020SG147531

PATIENT
  Age: 77 Year
  Sex: Female

DRUGS (2)
  1. PREDNISOLONE. [Suspect]
     Active Substance: PREDNISOLONE
     Indication: TUBULOINTERSTITIAL NEPHRITIS
     Dosage: 0.6 MG/KG
     Route: 048
  2. PREDNISOLONE. [Suspect]
     Active Substance: PREDNISOLONE
     Indication: IMMUNOSUPPRESSANT DRUG THERAPY
     Dosage: 5 MG, QD
     Route: 048

REACTIONS (2)
  - Product use in unapproved indication [Unknown]
  - Cytomegalovirus infection [Unknown]
